FAERS Safety Report 16645903 (Version 3)
Quarter: 2019Q3

REPORT INFORMATION
  Report Type: Spontaneous
  Country: US (occurrence: US)
  Receive Date: 20190730
  Receipt Date: 20190927
  Transmission Date: 20191004
  Serious: Yes (Disabling, Other)
  Sender: FDA-Public Use
  Company Number: US-009507513-1711USA004435

PATIENT
  Sex: Female

DRUGS (7)
  1. METFORMIN [Concomitant]
     Active Substance: METFORMIN HYDROCHLORIDE
     Indication: TYPE 2 DIABETES MELLITUS
     Dosage: 1000 MILLIGRAM, UNK
     Dates: start: 2014
  2. INSULIN GLARGINE [Concomitant]
     Active Substance: INSULIN GLARGINE
     Indication: TYPE 2 DIABETES MELLITUS
     Dosage: 100 UNT/ML, UNK
     Dates: start: 2014
  3. ZOSTAVAX [Suspect]
     Active Substance: VARICELLA-ZOSTER VIRUS STRAIN OKA/MERCK LIVE ANTIGEN
     Indication: PROPHYLAXIS
     Route: 058
     Dates: start: 20140522, end: 20150808
  4. ATORVASTATIN [Concomitant]
     Active Substance: ATORVASTATIN
     Indication: BLOOD CHOLESTEROL INCREASED
     Dosage: 80 MILLIGRAM, UNK
     Dates: start: 2014
  5. STERILE DILUENT (WATER) [Suspect]
     Active Substance: WATER
     Indication: PROPHYLAXIS
     Dosage: UNK
     Route: 058
     Dates: start: 20140522
  6. LISINOPRIL. [Concomitant]
     Active Substance: LISINOPRIL
     Indication: HYPERTENSION
     Dosage: 20 MILLIGRAM, UNK
     Dates: start: 2014
  7. AMLODIPINE [Concomitant]
     Active Substance: AMLODIPINE BESYLATE
     Indication: HYPERTENSION
     Dosage: 5 MILLIGRAM, UNK
     Dates: start: 2014

REACTIONS (21)
  - Necrotising retinitis [Not Recovered/Not Resolved]
  - Eye disorder [Not Recovered/Not Resolved]
  - Blindness [Not Recovered/Not Resolved]
  - Retinal disorder [Not Recovered/Not Resolved]
  - Optic atrophy [Not Recovered/Not Resolved]
  - Retinal vascular disorder [Not Recovered/Not Resolved]
  - Cataract [Unknown]
  - Varicella virus test positive [Unknown]
  - Retinopathy hypertensive [Unknown]
  - Optic nerve injury [Unknown]
  - Vasculitis [Unknown]
  - Iritis [Not Recovered/Not Resolved]
  - Retinal detachment [Recovered/Resolved]
  - Macular fibrosis [Unknown]
  - Cataract nuclear [Unknown]
  - Uveitis [Not Recovered/Not Resolved]
  - Diabetic retinopathy [Unknown]
  - Glycosylated haemoglobin abnormal [Unknown]
  - Vaccination failure [Not Recovered/Not Resolved]
  - Ophthalmic herpes zoster [Not Recovered/Not Resolved]
  - Herpes zoster [Unknown]

NARRATIVE: CASE EVENT DATE: 201602
